FAERS Safety Report 12996588 (Version 1)
Quarter: 2016Q4

REPORT INFORMATION
  Report Type: Spontaneous
  Country: US (occurrence: US)
  Receive Date: 20161204
  Receipt Date: 20161204
  Transmission Date: 20170207
  Serious: No
  Sender: FDA-Public Use
  Company Number: US-SHIRE-US201617772

PATIENT
  Sex: Female
  Weight: 61.22 kg

DRUGS (2)
  1. XIIDRA [Suspect]
     Active Substance: LIFITEGRAST
     Indication: PRODUCT USED FOR UNKNOWN INDICATION
     Dosage: 1 GTT, 2X/DAY:BID; THIS IS THE LOT # FROM FREE BOX FROM PHARMACY
     Route: 047
     Dates: start: 2016, end: 20161114
  2. XIIDRA [Suspect]
     Active Substance: LIFITEGRAST
     Dosage: 1 GTT, 2X/DAY:BID; THIS IS THE LOT # FROM SAMPLE FROM DOCTOR STARTED ON 18-NOV-2016
     Route: 047
     Dates: start: 20161116

REACTIONS (2)
  - Pruritus generalised [Not Recovered/Not Resolved]
  - Formication [Not Recovered/Not Resolved]

NARRATIVE: CASE EVENT DATE: 2016
